FAERS Safety Report 9621532 (Version 1)
Quarter: 2013Q4

REPORT INFORMATION
  Report Type: Spontaneous
  Country: BR (occurrence: BR)
  Receive Date: 20131015
  Receipt Date: 20131015
  Transmission Date: 20140711
  Serious: Yes (Other)
  Sender: FDA-Public Use
  Company Number: BR-PFIZER INC-2013287628

PATIENT
  Age: 66 Year
  Sex: Female

DRUGS (5)
  1. XALATAN [Suspect]
     Indication: INTRAOCULAR PRESSURE TEST ABNORMAL
     Dosage: 4 DROPS (6 UG), DAILY
     Route: 047
  2. XALACOM [Suspect]
     Dosage: UNK
     Dates: start: 2010
  3. ATENOLOL [Concomitant]
     Dosage: 25 MG
     Dates: start: 2008
  4. LEXOTAN [Concomitant]
     Dosage: 3 MG
     Dates: start: 2008
  5. DAFORIN [Concomitant]
     Dosage: 10 MG
     Dates: start: 1998

REACTIONS (7)
  - Glaucoma [Unknown]
  - Visual acuity reduced [Unknown]
  - Cataract [Unknown]
  - Blood pressure abnormal [Unknown]
  - Nervousness [Unknown]
  - Depression [Unknown]
  - Incorrect dose administered [Not Recovered/Not Resolved]
